FAERS Safety Report 8050137-3 (Version None)
Quarter: 2012Q1

REPORT INFORMATION
  Report Type: 
  Country: None (occurrence: None)
  Receive Date: 20120111
  Receipt Date: 20110124
  Transmission Date: 20120608
  Serious: Yes (Other)
  Sender: FDA-Public Use
  Company Number: 2010-06887

PATIENT
  Age: 14 Year
  Sex: Female

DRUGS (1)
  1. TUBERSOL [Suspect]
     Indication: TUBERCULIN TEST
     Dates: start: 20101203, end: 20101203

REACTIONS (2)
  - IMMEDIATE POST-INJECTION REACTION [None]
  - GRAND MAL CONVULSION [None]
